FAERS Safety Report 7208599-7 (Version None)
Quarter: 2011Q1

REPORT INFORMATION
  Report Type: 
  Country: None (occurrence: None)
  Receive Date: 20110104
  Receipt Date: 20101206
  Transmission Date: 20110831
  Serious: No
  Sender: FDA-Public Use
  Company Number: US-BAYER-2010-004873

PATIENT
  Age: 71 Year
  Sex: Male

DRUGS (4)
  1. LOTENSIN [Concomitant]
     Dosage: 10 MG, QD
  2. NEXAVAR [Suspect]
     Dosage: UNK
     Dates: start: 20090701
  3. TYLENOL W/ CODEINE NO. 3 [Concomitant]
     Dosage: UNK
  4. ZOMETA [Concomitant]
     Dosage: 40 MG, UNK

REACTIONS (3)
  - DIARRHOEA [None]
  - PALMAR-PLANTAR ERYTHRODYSAESTHESIA SYNDROME [None]
  - FATIGUE [None]
